FAERS Safety Report 9949101 (Version 4)
Quarter: 2014Q3

REPORT INFORMATION
  Report Type: Spontaneous
  Country: US (occurrence: None)
  Receive Date: 20140122
  Receipt Date: 20140819
  Transmission Date: 20150326
  Serious: Yes (Other)
  Sender: FDA-Public Use
  Company Number: AEGR000196

PATIENT
  Age: 55 Year
  Sex: Female
  Weight: 111.1 kg

DRUGS (15)
  1. PRILOSEC (OMEPRAZOLE) [Concomitant]
     Active Substance: OMEPRAZOLE MAGNESIUM
  2. EFFEXOR XR [Concomitant]
     Active Substance: VENLAFAXINE HYDROCHLORIDE
  3. ASPIRIN (ACETYLSALICYLIC ACID) [Concomitant]
     Active Substance: ASPIRIN
  4. LIVALO (PKITAVASTATIN CALCIUM) [Concomitant]
  5. TRAMADOL (TRAMADOL HYDROCHLORIDE) [Concomitant]
     Active Substance: TRAMADOL HYDROCHLORIDE
  6. FLEXERIL [Concomitant]
     Active Substance: CYCLOBENZAPRINE HYDROCHLORIDE
  7. VITAMIN E (TOCOPHERYL ACID SUCCINATE) [Concomitant]
  8. LIPITOR [Concomitant]
     Active Substance: ATORVASTATIN CALCIUM
  9. AMBIEN [Concomitant]
     Active Substance: ZOLPIDEM TARTRATE
  10. VOLTAREN [Concomitant]
     Active Substance: DICLOFENAC SODIUM
  11. FENTANYL (FENTANYL) [Concomitant]
     Active Substance: FENTANYL
  12. JUXTAPID [Suspect]
     Active Substance: LOMITAPIDE MESYLATE
     Indication: TYPE IIA HYPERLIPIDAEMIA
     Route: 048
     Dates: start: 20131021, end: 20131029
  13. ZETIA [Concomitant]
     Active Substance: EZETIMIBE
  14. CRESTOR [Concomitant]
     Active Substance: ROSUVASTATIN CALCIUM
  15. LIDODERM [Concomitant]
     Active Substance: LIDOCAINE

REACTIONS (7)
  - Gastrooesophageal reflux disease [None]
  - Diarrhoea [None]
  - Flatulence [None]
  - Dyspepsia [None]
  - Abdominal pain [None]
  - Irritable bowel syndrome [None]
  - Abdominal pain upper [None]

NARRATIVE: CASE EVENT DATE: 20131021
